FAERS Safety Report 24556277 (Version 2)
Quarter: 2024Q4

REPORT INFORMATION
  Report Type: Spontaneous
  Country: US (occurrence: US)
  Receive Date: 20241028
  Receipt Date: 20241111
  Transmission Date: 20250115
  Serious: No
  Sender: JOHNSON AND JOHNSON
  Company Number: US-JNJFOC-20241026286

PATIENT
  Age: 69 Year
  Sex: Female

DRUGS (1)
  1. TREMFYA [Suspect]
     Active Substance: GUSELKUMAB
     Indication: Psoriasis
     Route: 058
     Dates: start: 20241009

REACTIONS (4)
  - Alopecia [Recovering/Resolving]
  - Anxiety [Recovering/Resolving]
  - Stress [Recovering/Resolving]
  - Hypoaesthesia [Recovering/Resolving]
